FAERS Safety Report 7335271-5 (Version None)
Quarter: 2011Q1

REPORT INFORMATION
  Report Type: 
  Country: None (occurrence: None)
  Receive Date: 20110307
  Receipt Date: 20110301
  Transmission Date: 20110831
  Serious: No
  Sender: FDA-Public Use
  Company Number: US-PFIZER INC-2011045768

PATIENT
  Sex: Female
  Weight: 63.492 kg

DRUGS (6)
  1. PRILOSEC [Concomitant]
     Dosage: UNK
  2. LYRICA [Suspect]
     Indication: NEURALGIA
     Dosage: 50 MG, 2X/DAY
     Route: 048
     Dates: start: 20110224, end: 20110228
  3. MESTINON [Concomitant]
     Indication: MYASTHENIA GRAVIS
     Dosage: UNK
  4. GABAPENTIN [Concomitant]
     Indication: NEURALGIA
     Dosage: 200 MG, 1X/DAY
  5. HYDROCHLOROTHIAZIDE [Concomitant]
     Dosage: UNK
  6. SYNTHROID [Concomitant]
     Dosage: UNK

REACTIONS (1)
  - BURNING SENSATION [None]
